FAERS Safety Report 6061527-2 (Version None)
Quarter: 2009Q1

REPORT INFORMATION
  Report Type: 
  Country: None (occurrence: None)
  Receive Date: 20090202
  Receipt Date: 20090121
  Transmission Date: 20090719
  Serious: Yes (Hospitalization)
  Sender: FDA-Public Use
  Company Number: FR-ROCHE-610305

PATIENT
  Sex: Female
  Weight: 109 kg

DRUGS (12)
  1. ROCEPHIN [Suspect]
     Indication: DRUG USE FOR UNKNOWN INDICATION
     Route: 042
     Dates: start: 20080716, end: 20080805
  2. CELLCEPT [Suspect]
     Indication: DRUG USE FOR UNKNOWN INDICATION
     Route: 048
     Dates: end: 20080808
  3. TENORMIN [Suspect]
     Indication: DRUG USE FOR UNKNOWN INDICATION
     Route: 048
  4. AMLOD [Suspect]
     Indication: DRUG USE FOR UNKNOWN INDICATION
     Route: 048
  5. OFLOCET [Suspect]
     Indication: DRUG USE FOR UNKNOWN INDICATION
     Route: 048
     Dates: start: 20080722, end: 20080805
  6. CORDARONE [Suspect]
     Indication: DRUG USE FOR UNKNOWN INDICATION
     Route: 048
  7. VASTEN [Suspect]
     Indication: DRUG USE FOR UNKNOWN INDICATION
     Route: 048
     Dates: end: 20080806
  8. NEORAL [Concomitant]
  9. LASILIX [Concomitant]
  10. PREVISCAN [Concomitant]
  11. SPECIAFOLDINE [Concomitant]
  12. ARANESP [Concomitant]

REACTIONS (4)
  - MUSCULAR WEAKNESS [None]
  - PARESIS [None]
  - RENAL FAILURE [None]
  - RHABDOMYOLYSIS [None]
